FAERS Safety Report 14194917 (Version 3)
Quarter: 2018Q1

REPORT INFORMATION
  Report Type: Spontaneous
  Country: BR (occurrence: BR)
  Receive Date: 20171116
  Receipt Date: 20180315
  Transmission Date: 20180508
  Serious: Yes (Hospitalization, Other)
  Sender: FDA-Public Use
  Company Number: BR-ABBVIE-17P-020-2165983-00

PATIENT
  Sex: Male
  Weight: 83 kg

DRUGS (9)
  1. TRAMAL [Concomitant]
     Active Substance: TRAMADOL
     Indication: GOUT
  2. CLONAZEPAM. [Concomitant]
     Active Substance: CLONAZEPAM
     Indication: SLEEP DISORDER THERAPY
     Dosage: AT NIGHT
     Route: 048
  3. SERTRALINE [Concomitant]
     Active Substance: SERTRALINE HYDROCHLORIDE
     Indication: ANTIDEPRESSANT THERAPY
     Dosage: MORNING/ AFTERNOON/ AT NIGHT
     Route: 048
  4. LAMOTRIGINE. [Concomitant]
     Active Substance: LAMOTRIGINE
     Indication: EPILEPSY
     Dosage: MORNING/ NIGHT
     Route: 048
  5. TRAMAL [Concomitant]
     Active Substance: TRAMADOL
     Indication: SCHIZOPHRENIA
  6. TRAMAL [Concomitant]
     Active Substance: TRAMADOL
     Indication: ILLNESS ANXIETY DISORDER
  7. PAMERGAN [Concomitant]
     Indication: SLEEP DISORDER THERAPY
     Dosage: AT NIGHT
     Route: 048
  8. DEPAKENE [Suspect]
     Active Substance: VALPROIC ACID
     Indication: EPILEPSY
     Dosage: MORNING/ AFTERNOON/ AT NIGHT
     Route: 048
     Dates: start: 2016
  9. TRAMAL [Concomitant]
     Active Substance: TRAMADOL
     Indication: PAIN
     Route: 048

REACTIONS (11)
  - Hyperhidrosis [Not Recovered/Not Resolved]
  - Weight decreased [Not Recovered/Not Resolved]
  - Feeling abnormal [Unknown]
  - Abdominal pain [Not Recovered/Not Resolved]
  - Nervousness [Not Recovered/Not Resolved]
  - Diverticulitis [Unknown]
  - Chills [Not Recovered/Not Resolved]
  - Headache [Not Recovered/Not Resolved]
  - Inflammation [Unknown]
  - Anal haemorrhage [Recovered/Resolved]
  - Haemorrhage [Unknown]

NARRATIVE: CASE EVENT DATE: 2016
